FAERS Safety Report 5374214-0 (Version None)
Quarter: 2007Q2

REPORT INFORMATION
  Report Type: 
  Country: None (occurrence: None)
  Receive Date: 20070627
  Receipt Date: 20060719
  Transmission Date: 20071010
  Serious: Yes (Hospitalization)
  Sender: FDA-Public Use
  Company Number: 456390

PATIENT
  Age: 49 Year
  Sex: Female
  Weight: 85.3 kg

DRUGS (6)
  1. XELODA [Suspect]
     Indication: BREAST CANCER METASTATIC
     Dosage: 1500 MG 2 PER DAY ORAL
     Route: 048
     Dates: start: 20051207
  2. HERCEPTIN [Concomitant]
  3. LOTRIL (CLOTRIMAZOLE) [Concomitant]
  4. SYNTHROID [Concomitant]
  5. COUMADIN [Concomitant]
  6. NEXIUM [Concomitant]

REACTIONS (1)
  - DIARRHOEA [None]
